FAERS Safety Report 7791037-3 (Version None)
Quarter: 2011Q4

REPORT INFORMATION
  Report Type: 
  Country: None (occurrence: None)
  Receive Date: 20111003
  Receipt Date: 20110922
  Transmission Date: 20120403
  Serious: Yes (Hospitalization)
  Sender: FDA-Public Use
  Company Number: US-BIOGENIDEC-2011BI036687

PATIENT
  Age: 45 Year
  Sex: Female

DRUGS (1)
  1. TYSABRI [Suspect]
     Indication: MULTIPLE SCLEROSIS
     Route: 042
     Dates: start: 20100601, end: 20110428

REACTIONS (7)
  - URINARY TRACT INFECTION [None]
  - LIGAMENT SPRAIN [None]
  - SEPSIS [None]
  - FALL [None]
  - DEHYDRATION [None]
  - BLOOD PRESSURE ABNORMAL [None]
  - FIBULA FRACTURE [None]
